FAERS Safety Report 19638992 (Version 10)
Quarter: 2022Q4

REPORT INFORMATION
  Report Type: Spontaneous
  Country: US (occurrence: US)
  Receive Date: 20210729
  Receipt Date: 20221208
  Transmission Date: 20230113
  Serious: Yes (Hospitalization)
  Sender: FDA-Public Use
  Company Number: US-SA-SAC20210727000977

PATIENT
  Age: 53 Year
  Sex: Female

DRUGS (2)
  1. DUPIXENT [Suspect]
     Active Substance: DUPILUMAB
     Indication: Dermatitis atopic
     Dosage: 600 MG, 1X
     Route: 058
     Dates: start: 202103
  2. DUPIXENT [Suspect]
     Active Substance: DUPILUMAB
     Dosage: 300 MG, QOW
     Route: 058
     Dates: start: 2021

REACTIONS (12)
  - Depression [Unknown]
  - Anxiety [Unknown]
  - Skin ulcer [Unknown]
  - Otitis media [Unknown]
  - Ear pain [Unknown]
  - Upper-airway cough syndrome [Unknown]
  - Respiratory tract infection [Unknown]
  - Abdominal pain upper [Unknown]
  - Auricular swelling [Unknown]
  - Oropharyngeal pain [Unknown]
  - Pruritus [Unknown]
  - Rash [Unknown]

NARRATIVE: CASE EVENT DATE: 20210101
